APPROVED DRUG PRODUCT: ISOSORBIDE DINITRATE
Active Ingredient: ISOSORBIDE DINITRATE
Strength: 40MG
Dosage Form/Route: TABLET;ORAL
Application: A213057 | Product #005 | TE Code: AB
Applicant: ZYDUS LIFESCIENCES GLOBAL FZE
Approved: Nov 20, 2019 | RLD: No | RS: No | Type: RX